FAERS Safety Report 13407325 (Version 2)
Quarter: 2017Q2

REPORT INFORMATION
  Report Type: Report from Study
  Country: None (occurrence: FI)
  Receive Date: 20170405
  Receipt Date: 20170615
  Transmission Date: 20170830
  Serious: Yes (Death)
  Sender: FDA-Public Use
  Company Number: FI-ABBVIE-17P-055-1931389-00

PATIENT
  Age: 78 Year
  Sex: Male

DRUGS (5)
  1. FLORINEF ACETATE [Concomitant]
     Active Substance: FLUDROCORTISONE ACETATE
     Indication: PRODUCT USED FOR UNKNOWN INDICATION
     Dosage: ONE EVERY MORNING
  2. LAXOBERON [Concomitant]
     Active Substance: SODIUM PICOSULFATE
     Indication: ABDOMINAL DISTENSION
  3. DUODOPA [Suspect]
     Active Substance: CARBIDOPA\LEVODOPA
     Indication: PARKINSON^S DISEASE
     Dosage: CD AT DAY:3.9 OR 4.1 ML; CD AT NIGHT 3.3 ML; MD 2.2 ML; ED 1.0 ML 24 H
     Route: 050
     Dates: start: 2009
  4. GUTRON [Concomitant]
     Active Substance: MIDODRINE
     Indication: BLOOD PRESSURE DECREASED
  5. LEVOLAC [Concomitant]
     Active Substance: LACTULOSE
     Indication: ABDOMINAL DISTENSION

REACTIONS (4)
  - Vomiting [Fatal]
  - Pneumonia [Fatal]
  - Aspiration [Fatal]
  - Parkinson^s disease [Fatal]

NARRATIVE: CASE EVENT DATE: 20170329
